FAERS Safety Report 4334766-6 (Version None)
Quarter: 2004Q2

REPORT INFORMATION
  Report Type: 
  Country: None (occurrence: None)
  Receive Date: 20040407
  Receipt Date: 20040407
  Transmission Date: 20050107
  Serious: Yes (Hospitalization)
  Sender: FDA-Public Use
  Company Number: None

PATIENT
  Sex: Female
  Weight: 51 kg

DRUGS (13)
  1. AMPICILLIN AND SULBACTAM [Suspect]
     Indication: PROPHYLAXIS
     Dosage: 1.5 GRAMS IV Q 6 HRS
     Route: 042
     Dates: start: 20031212
  2. AMPICILLIN AND SULBACTAM [Suspect]
     Indication: SURGERY
     Dosage: 1.5 GRAMS IV Q 6 HRS
     Route: 042
     Dates: start: 20031212
  3. CLOPIDOGREL [Concomitant]
  4. BENZAPRIL [Concomitant]
  5. SIMVASTATIN [Concomitant]
  6. ATENOLOL [Concomitant]
  7. ASPIRIN [Concomitant]
  8. ALLOPURINOL [Concomitant]
  9. GEMFIBROZIL [Concomitant]
  10. HYDROXIME [Concomitant]
  11. KCL TAB [Concomitant]
  12. ALPRAZOLAM [Concomitant]
  13. NORTRIPTYLINE HCL [Concomitant]

REACTIONS (3)
  - DYSPNOEA [None]
  - HYPERSENSITIVITY [None]
  - MEDICATION ERROR [None]
